FAERS Safety Report 5014624-4 (Version None)
Quarter: 2006Q2

REPORT INFORMATION
  Report Type: 
  Country: None (occurrence: None)
  Receive Date: 20060412
  Receipt Date: 20050927
  Transmission Date: 20061013
  Serious: Yes (Other)
  Sender: FDA-Public Use
  Company Number: 2005-BP-16643BP

PATIENT
  Age: 84 Year
  Sex: Female

DRUGS (8)
  1. MOBIC [Suspect]
     Indication: OSTEOARTHRITIS
     Dosage: 7.5 MG (7.5 MG, 1 IN 1 D), PO
     Route: 048
     Dates: start: 20050817
  2. MOBIC [Suspect]
     Indication: OSTEOARTHRITIS
     Dosage: 7.5 MG (7.5 MG, 1 IN 1 D), PO
     Route: 048
     Dates: start: 20050913
  3. LEVOXYL [Concomitant]
  4. LISINOPRIL (LISONPRIL) [Concomitant]
  5. THYROID TAB [Concomitant]
  6. KLOR-CON [Concomitant]
  7. FUROSEMIDE [Concomitant]
  8. ONE A DAY VITAMIN [Concomitant]

REACTIONS (1)
  - CEREBROVASCULAR ACCIDENT [None]
